FAERS Safety Report 9173932 (Version 2)
Quarter: 2014Q1

REPORT INFORMATION
  Report Type: Spontaneous
  Country: US (occurrence: US)
  Receive Date: 20130320
  Receipt Date: 20140318
  Transmission Date: 20141002
  Serious: No
  Sender: FDA-Public Use
  Company Number: US-GALDERMA-US12415902

PATIENT
  Age: 57 Year
  Sex: Female
  Weight: 82 kg

DRUGS (21)
  1. VECTICAL (CALCITRIOL) OINTMENT 3 MCG/G [Suspect]
     Indication: PSORIASIS
     Route: 061
     Dates: start: 201211, end: 20121207
  2. CLOBETASOL PROPIONATE [Concomitant]
     Indication: PSORIASIS
     Route: 061
  3. TRIAMTERENE HCTZ [Concomitant]
     Indication: HYPERTENSION
     Dosage: 37.5-25 MG
     Route: 048
     Dates: start: 2009
  4. AMBIEN (ZOLPIDEM) [Concomitant]
     Indication: SLEEP DISORDER
     Dosage: 10 MG
     Route: 048
  5. BIOFLAVENOIDS [Concomitant]
     Indication: INFLAMMATION
     Route: 048
     Dates: start: 201209
  6. ASTAXANTHIN [Concomitant]
     Indication: SUPPLEMENTATION THERAPY
     Route: 048
     Dates: start: 201206
  7. VITAMIN D [Concomitant]
     Route: 048
  8. CALCIUM [Concomitant]
     Route: 048
     Dates: end: 20121210
  9. CALCIUM [Concomitant]
     Route: 048
  10. CO Q10 [Concomitant]
     Dosage: 100 MG
     Route: 048
  11. VITAMIN C WITH BIOFLAVANOIDS [Concomitant]
     Dosage: 1000 MG
     Route: 048
  12. MAGNESIUM CITRATE [Concomitant]
     Dosage: 400 MG
     Route: 048
  13. GTF CHROMIUM [Concomitant]
     Dosage: 200 MCG
     Route: 048
  14. FISH OIL [Concomitant]
     Dosage: 2400 MG
     Route: 048
  15. CIRCUMIN [Concomitant]
     Dosage: 500 MG
     Route: 048
  16. FOLIC ACID [Concomitant]
     Dosage: 1 MG
     Route: 048
  17. BENADRYL [Concomitant]
     Indication: SLEEP DISORDER
     Dosage: 25 MG
     Route: 048
  18. IBUPROFEN [Concomitant]
     Indication: PAIN
     Route: 048
  19. EXCEDRIN MIGRAINE [Concomitant]
     Indication: HEADACHE
     Route: 048
  20. SEASONAL ALLERGY MEDICATION [Concomitant]
     Indication: SEASONAL ALLERGY
     Route: 048
  21. CLOBETASOL LIQUID [Concomitant]
     Indication: SKIN DISORDER
     Route: 061

REACTIONS (8)
  - Arrhythmia [Recovered/Resolved]
  - Heart rate irregular [Recovered/Resolved]
  - Blood pressure increased [Recovered/Resolved]
  - Bradycardia [Recovered/Resolved]
  - Palpitations [Recovered/Resolved]
  - Feeling abnormal [Recovered/Resolved]
  - Sleep disorder due to general medical condition, insomnia type [Recovered/Resolved]
  - Ventricular extrasystoles [Recovered/Resolved]
